FAERS Safety Report 15601311 (Version 2)
Quarter: 2019Q1

REPORT INFORMATION
  Report Type: Spontaneous
  Country: US (occurrence: US)
  Receive Date: 20181109
  Receipt Date: 20190117
  Transmission Date: 20190417
  Serious: Yes (Death, Other)
  Sender: FDA-Public Use
  Company Number: US-ASTELLAS-2018US047616

PATIENT
  Sex: Male

DRUGS (1)
  1. XTANDI [Suspect]
     Active Substance: ENZALUTAMIDE
     Indication: PROSTATE CANCER
     Dosage: 160 MG (4 CAPSULES), ONCE DAILY
     Route: 048

REACTIONS (9)
  - Acute kidney injury [Fatal]
  - Metabolic encephalopathy [Fatal]
  - Anxiety [Unknown]
  - Cancer pain [Unknown]
  - Prostate cancer [Fatal]
  - Cardio-respiratory arrest [Fatal]
  - Hypertension [Unknown]
  - Sepsis [Unknown]
  - Dyspepsia [Unknown]
